FAERS Safety Report 21973266 (Version 12)
Quarter: 2023Q2

REPORT INFORMATION
  Report Type: Spontaneous
  Country: CN (occurrence: CN)
  Receive Date: 20230209
  Receipt Date: 20230511
  Transmission Date: 20230721
  Serious: Yes (Hospitalization)
  Sender: FDA-Public Use
  Company Number: CN-TAIHO-2023-000763

PATIENT
  Age: 54 Year
  Sex: Male
  Weight: 56 kg

DRUGS (3)
  1. TIPIRACIL HYDROCHLORIDE\TRIFLURIDINE [Suspect]
     Active Substance: TIPIRACIL HYDROCHLORIDE\TRIFLURIDINE
     Indication: Colorectal cancer metastatic
     Dosage: CYCLE 1-2
     Route: 048
     Dates: start: 20221118, end: 20221231
  2. TIPIRACIL HYDROCHLORIDE\TRIFLURIDINE [Suspect]
     Active Substance: TIPIRACIL HYDROCHLORIDE\TRIFLURIDINE
     Dosage: CURRENT CYCLE UNKNOWN
     Route: 048
     Dates: start: 20230222
  3. AMBROXOL HYDROCHLORIDE AND CLENBUTEROL HYDROCHLORIDE [Concomitant]
     Indication: Product used for unknown indication
     Route: 048
     Dates: start: 20230113, end: 20230114

REACTIONS (1)
  - Hepatic failure [Recovered/Resolved]

NARRATIVE: CASE EVENT DATE: 20230128
